FAERS Safety Report 5280925-8 (Version None)
Quarter: 2007Q1

REPORT INFORMATION
  Report Type: 
  Country: None (occurrence: None)
  Receive Date: 20070329
  Receipt Date: 20070319
  Transmission Date: 20070707
  Serious: Yes (Other)
  Sender: FDA-Public Use
  Company Number: FI-ELI_LILLY_AND_COMPANY-FI200701005598

PATIENT
  Age: 74 Year
  Sex: Female

DRUGS (12)
  1. TERIPARATIDE [Suspect]
     Indication: OSTEOPOROSIS
     Dosage: UNK UNK, DAILY (1/D)
     Route: 058
     Dates: start: 20070111, end: 20070128
  2. CALCICHEW-D3 [Concomitant]
     Dosage: UNK UNK, 2/D
     Route: 048
  3. MINOCIN [Concomitant]
     Dosage: UNK UNK, 2/D
     Route: 048
  4. PERSANTINAT [Concomitant]
  5. TRILEPTAL [Concomitant]
  6. PRAVACHOL [Concomitant]
  7. LISIPROL [Concomitant]
  8. PANTOPRAZOLE SODIUM [Concomitant]
  9. PRIMASPAN [Concomitant]
  10. PREDNISON [Concomitant]
  11. SPECICOR /OLD FORM/ [Concomitant]
  12. CRESTOR [Concomitant]

REACTIONS (3)
  - BLOOD PRESSURE INCREASED [None]
  - HEADACHE [None]
  - NAUSEA [None]
